FAERS Safety Report 4790979-0 (Version None)
Quarter: 2005Q4

REPORT INFORMATION
  Report Type: 
  Country: None (occurrence: None)
  Receive Date: 20051005
  Receipt Date: 20050915
  Transmission Date: 20060501
  Serious: Yes (Other)
  Sender: FDA-Public Use
  Company Number: USA0509108286

PATIENT
  Age: 79 Year
  Sex: Female

DRUGS (1)
  1. FORTEO [Suspect]
     Indication: OSTEOPOROSIS
     Dosage: UNK
     Route: 065
     Dates: start: 20050801

REACTIONS (7)
  - ABDOMINAL PAIN UPPER [None]
  - GROIN PAIN [None]
  - MEDICAL DEVICE COMPLICATION [None]
  - PAIN [None]
  - PAIN IN EXTREMITY [None]
  - PARALYSIS [None]
  - PHARMACEUTICAL PRODUCT COMPLAINT [None]
